FAERS Safety Report 9540067 (Version 2)
Quarter: 2014Q1

REPORT INFORMATION
  Report Type: Spontaneous
  Country: US (occurrence: None)
  Receive Date: 20130524
  Receipt Date: 20130724
  Transmission Date: 20141002
  Serious: Yes (Hospitalization)
  Sender: FDA-Public Use
  Company Number: PHEH2013US003238

PATIENT
  Age: 64 Year
  Sex: Female

DRUGS (2)
  1. GILENYA (FINGOLIMOD) CAPSULE, 0.5MG [Suspect]
     Indication: MULTIPLE SCLEROSIS
     Route: 048
  2. ANTIBIOTICS [Suspect]

REACTIONS (6)
  - Pneumonia [None]
  - Bronchitis [None]
  - Multiple sclerosis relapse [None]
  - Blood electrolytes abnormal [None]
  - Hyperhidrosis [None]
  - Candida infection [None]
